FAERS Safety Report 17895381 (Version 1)
Quarter: 2020Q2

REPORT INFORMATION
  Report Type: Spontaneous
  Country: PH (occurrence: PH)
  Receive Date: 20200615
  Receipt Date: 20200615
  Transmission Date: 20200714
  Serious: Yes (Hospitalization)
  Sender: FDA-Public Use
  Company Number: PH-AMNEAL PHARMACEUTICALS-2020-AMRX-01666

PATIENT
  Age: 35 Year
  Sex: Male

DRUGS (1)
  1. SEVELAMER CARBONATE. [Suspect]
     Active Substance: SEVELAMER CARBONATE
     Indication: HYPERPHOSPHATAEMIA
     Dosage: UNK
     Route: 065

REACTIONS (2)
  - Rectal ulcer [Recovered/Resolved]
  - Lower gastrointestinal haemorrhage [Recovered/Resolved]
